FAERS Safety Report 10747769 (Version 3)
Quarter: 2016Q1

REPORT INFORMATION
  Report Type: Spontaneous
  Country: US (occurrence: US)
  Receive Date: 20150129
  Receipt Date: 20160301
  Transmission Date: 20160525
  Serious: Yes (Hospitalization)
  Sender: FDA-Public Use
  Company Number: US-PFIZER INC-2015031519

PATIENT
  Sex: Female
  Weight: 78 kg

DRUGS (3)
  1. MORPHINE SULFATE. [Suspect]
     Active Substance: MORPHINE SULFATE
     Indication: PAIN
     Dosage: 5 MG, 2X/DAY
     Dates: end: 2013
  2. TRAZODONE HYDROCHLORIDE. [Suspect]
     Active Substance: TRAZODONE HYDROCHLORIDE
     Indication: SLEEP DISORDER
     Dosage: UNK UNK, 1X/DAY
     Dates: end: 2013
  3. AMBIEN [Suspect]
     Active Substance: ZOLPIDEM TARTRATE
     Indication: SLEEP DISORDER
     Dosage: UNK UNK, 1X/DAY
     Dates: end: 2013

REACTIONS (3)
  - Nightmare [Unknown]
  - Fear [Unknown]
  - Drug hypersensitivity [Recovered/Resolved]
